FAERS Safety Report 6402476-7 (Version None)
Quarter: 2009Q4

REPORT INFORMATION
  Report Type: 
  Country: None (occurrence: None)
  Receive Date: 20091015
  Receipt Date: 20091001
  Transmission Date: 20100525
  Serious: Yes (Other)
  Sender: FDA-Public Use
  Company Number: CA-GENENTECH-283593

PATIENT
  Sex: Female
  Weight: 59 kg

DRUGS (1)
  1. XOLAIR [Suspect]
     Indication: ASTHMA
     Dosage: 300 UNK, UNK
     Route: 058
     Dates: start: 20050425

REACTIONS (4)
  - ANAEMIA [None]
  - DYSPNOEA [None]
  - HEART RATE INCREASED [None]
  - VOLVULUS [None]
